FAERS Safety Report 7281547-X (Version None)
Quarter: 2011Q1

REPORT INFORMATION
  Report Type: 
  Country: None (occurrence: None)
  Receive Date: 20110127
  Receipt Date: 20110124
  Transmission Date: 20110831
  Serious: Yes (Life-Threatening, Other)
  Sender: FDA-Public Use
  Company Number: 20119916

PATIENT
  Sex: Female

DRUGS (1)
  1. LIORESAL [Suspect]
     Indication: MUSCLE SPASTICITY
     Dosage: DAILY, INTRATHECAL
     Route: 037

REACTIONS (10)
  - APPARENT LIFE THREATENING EVENT [None]
  - MUSCLE SPASMS [None]
  - MUSCLE TIGHTNESS [None]
  - FEELING ABNORMAL [None]
  - ASTHENIA [None]
  - MUSCLE ATROPHY [None]
  - DRUG DEPENDENCE [None]
  - DRUG INEFFECTIVE [None]
  - ANTIBODY TEST POSITIVE [None]
  - NECK PAIN [None]
